FAERS Safety Report 6151779-2 (Version None)
Quarter: 2009Q2

REPORT INFORMATION
  Report Type: 
  Country: None (occurrence: None)
  Receive Date: 20090410
  Receipt Date: 20090403
  Transmission Date: 20091009
  Serious: Yes (Death, Hospitalization, Other)
  Sender: FDA-Public Use
  Company Number: KR-ELI_LILLY_AND_COMPANY-KR200904001643

PATIENT
  Sex: Male
  Weight: 71 kg

DRUGS (12)
  1. PEMETREXED [Suspect]
     Indication: NON-SMALL CELL LUNG CANCER
     Dosage: 500 MG/M2 (950MG), UNK
     Route: 042
     Dates: start: 20070904
  2. FOLIC ACID [Concomitant]
     Indication: PROPHYLAXIS
     Dosage: 1 MG, UNK
     Route: 048
     Dates: start: 20070828
  3. VITAMIN B-12 [Concomitant]
     Indication: PROPHYLAXIS
     Dosage: 1 MG, UNK
     Route: 030
     Dates: start: 20070828
  4. DEXAMETHASONE 4MG TAB [Concomitant]
     Indication: PROPHYLAXIS
     Dosage: 4 MG, UNK
     Route: 048
     Dates: start: 20070828
  5. CYTOTEC [Concomitant]
     Indication: PROPHYLAXIS
  6. ATACAND [Concomitant]
     Indication: HYPERTENSION
  7. FELODIPINE [Concomitant]
     Indication: HYPERTENSION
  8. TAGAMET [Concomitant]
  9. OXYCONTIN [Concomitant]
     Indication: PAIN
  10. XATRAL XL [Concomitant]
  11. MYOTONINE [Concomitant]
  12. MYCOSTATIN [Concomitant]
     Indication: FUNGAL INFECTION
     Dates: start: 20071027

REACTIONS (4)
  - HUMERUS FRACTURE [None]
  - HYPERCALCAEMIA [None]
  - PNEUMONIA VIRAL [None]
  - RENAL FAILURE ACUTE [None]
